FAERS Safety Report 5918538-4 (Version None)
Quarter: 2008Q4

REPORT INFORMATION
  Report Type: 
  Country: None (occurrence: None)
  Receive Date: 20081014
  Receipt Date: 20081014
  Transmission Date: 20090506
  Serious: Yes (Hospitalization)
  Sender: FDA-Public Use
  Company Number: None

PATIENT
  Sex: Female
  Weight: 102.0593 kg

DRUGS (1)
  1. NIASPAN [Suspect]
     Indication: BLOOD TRIGLYCERIDES INCREASED
     Dosage: ONE TABLET AT BEDTIME PO
     Route: 048
     Dates: start: 20081010, end: 20081011

REACTIONS (12)
  - BURNING SENSATION [None]
  - DEFAECATION URGENCY [None]
  - DISORIENTATION [None]
  - FACE INJURY [None]
  - FACIAL PAIN [None]
  - HYPERHIDROSIS [None]
  - NAUSEA [None]
  - PAIN IN EXTREMITY [None]
  - PALLOR [None]
  - SKIN TIGHTNESS [None]
  - SUNBURN [None]
  - SYNCOPE [None]
